FAERS Safety Report 13497125 (Version 2)
Quarter: 2017Q2

REPORT INFORMATION
  Report Type: Spontaneous
  Country: FR (occurrence: FR)
  Receive Date: 20170428
  Receipt Date: 20170512
  Transmission Date: 20170830
  Serious: Yes (Death, Hospitalization, Other)
  Sender: FDA-Public Use
  Company Number: FR-PFIZER INC-2017185516

PATIENT
  Age: 62 Year
  Sex: Female

DRUGS (8)
  1. IMIPENEM [Concomitant]
     Active Substance: IMIPENEM
     Indication: ANTIBIOTIC THERAPY
     Dosage: 500 MG, 4X/DAY
     Dates: start: 201307
  2. VANCOMYCIN [Concomitant]
     Active Substance: VANCOMYCIN
     Indication: ANTIBIOTIC THERAPY
     Dosage: 1 G, LOADING DOSE
     Dates: start: 201307
  3. VANCOMYCIN [Concomitant]
     Active Substance: VANCOMYCIN
     Dosage: 1 G, DAILY
     Route: 041
  4. PIPERACILLIN/TAZOBACTAM [Suspect]
     Active Substance: PIPERACILLIN SODIUM\TAZOBACTAM SODIUM
     Indication: SEPSIS
     Dosage: 4 G, 3X/DAY
     Route: 042
     Dates: start: 201307
  5. CEFOTAXIME [Suspect]
     Active Substance: CEFOTAXIME SODIUM
     Indication: ANTIBIOTIC THERAPY
     Dosage: 1 G, 3X/DAY
     Dates: start: 20130629
  6. CIPROFLOXACIN. [Suspect]
     Active Substance: CIPROFLOXACIN
     Indication: SEPSIS
     Dosage: 400 MG, 2X/DAY
     Route: 042
     Dates: start: 201307
  7. TRIMETHOPRIM SULFAMETHOXAZOLE [Concomitant]
     Active Substance: SULFAMETHOXAZOLE\TRIMETHOPRIM
     Indication: PNEUMONIA
     Dosage: 400 MG, 2X/DAY
     Route: 042
     Dates: start: 20130710
  8. SPIRAMYCIN [Suspect]
     Active Substance: SPIRAMYCIN
     Indication: ANTIBIOTIC THERAPY
     Dosage: 3 MILLION IU, 2X/DAY
     Dates: start: 20130629

REACTIONS (9)
  - Clostridium bacteraemia [Fatal]
  - Hypothermia [None]
  - Enterocolitis [None]
  - Tachycardia [None]
  - Hyperlactacidaemia [None]
  - Hypotension [None]
  - Cyanosis [None]
  - Hypoperfusion [None]
  - Leukocytosis [None]

NARRATIVE: CASE EVENT DATE: 201307
